FAERS Safety Report 14102543 (Version 1)
Quarter: 2017Q4

REPORT INFORMATION
  Report Type: Spontaneous
  Country: US (occurrence: US)
  Receive Date: 20171018
  Receipt Date: 20171018
  Transmission Date: 20180321
  Serious: Yes (Hospitalization)
  Sender: FDA-Public Use
  Company Number: US-ELI_LILLY_AND_COMPANY-US201710004168

PATIENT
  Age: 76 Year
  Sex: Female

DRUGS (2)
  1. FORTEO [Suspect]
     Active Substance: TERIPARATIDE
     Indication: OSTEOPOROSIS
     Dosage: UNK, UNKNOWN
     Route: 065
     Dates: start: 20120207
  2. PREDNISONE. [Suspect]
     Active Substance: PREDNISONE
     Indication: MYALGIA
     Dosage: UNK, UNKNOWN
     Route: 065

REACTIONS (14)
  - Fall [Recovering/Resolving]
  - Scar [Unknown]
  - Fall [Recovering/Resolving]
  - Scab [Unknown]
  - Scratch [Recovering/Resolving]
  - Osteoporosis [Unknown]
  - Multiple fractures [Recovered/Resolved]
  - Fall [Recovered/Resolved]
  - Sinusitis [Recovered/Resolved]
  - Joint injury [Recovering/Resolving]
  - Myalgia [Not Recovered/Not Resolved]
  - Rib fracture [Recovered/Resolved]
  - Limb injury [Recovering/Resolving]
  - Blister [Recovered/Resolved]

NARRATIVE: CASE EVENT DATE: 201601
